FAERS Safety Report 10111369 (Version 2)
Quarter: 2015Q1

REPORT INFORMATION
  Report Type: Other
  Country: US (occurrence: US)
  Receive Date: 20140425
  Receipt Date: 20150206
  Transmission Date: 20150720
  Serious: Yes (Hospitalization, Other)
  Sender: FDA-Public Use
  Company Number: US-GSKPPD-2014GSK011227

PATIENT
  Age: 63 Year
  Sex: Male

DRUGS (25)
  1. AVANDIA [Suspect]
     Active Substance: ROSIGLITAZONE MALEATE
     Indication: DIABETES MELLITUS
     Dosage: AVANDIA WAS NOT LISTED AMONG THE PATIENTS RECORDS REVIEWED.
     Route: 048
  2. LASIX [Concomitant]
     Active Substance: FUROSEMIDE
  3. PRAVASTATIN [Concomitant]
     Active Substance: PRAVASTATIN\PRAVASTATIN SODIUM
  4. TESTOSTERONE. [Concomitant]
     Active Substance: TESTOSTERONE
     Route: 048
  5. CLONIDINE. [Concomitant]
     Active Substance: CLONIDINE
  6. NIASPAN [Concomitant]
     Active Substance: NIACIN
  7. TRICOR [Concomitant]
     Active Substance: FENOFIBRATE
  8. CORTISONE [Concomitant]
     Active Substance: CORTISONE\HYDROCORTISONE
  9. ASPIRIN. [Concomitant]
     Active Substance: ASPIRIN
  10. ATACAND [Concomitant]
     Active Substance: CANDESARTAN CILEXETIL
  11. FLOMAX [Concomitant]
     Active Substance: TAMSULOSIN HYDROCHLORIDE
  12. CIALIS [Concomitant]
     Active Substance: TADALAFIL
  13. PHENERGAN [Concomitant]
     Active Substance: PROMETHAZINE HYDROCHLORIDE
  14. POTASSIUM [Concomitant]
     Active Substance: POTASSIUM
  15. LANTUS [Concomitant]
     Active Substance: INSULIN GLARGINE
  16. MOBIC [Concomitant]
     Active Substance: MELOXICAM
  17. NITROSTAT [Concomitant]
     Active Substance: NITROGLYCERIN
  18. LORTAB [Concomitant]
     Active Substance: ACETAMINOPHEN\HYDROCODONE BITARTRATE
  19. CHLORTHALIDONE. [Concomitant]
     Active Substance: CHLORTHALIDONE
  20. TRAMADOL [Concomitant]
     Active Substance: TRAMADOL
  21. TRAZODONE [Concomitant]
     Active Substance: TRAZODONE HYDROCHLORIDE
  22. HUMALOG [Concomitant]
     Active Substance: INSULIN LISPRO
  23. CALCIUM [Concomitant]
     Active Substance: CALCIUM
  24. MAGNESIUM [Concomitant]
     Active Substance: MAGNESIUM
  25. RANITIDINE [Concomitant]
     Active Substance: RANITIDINE\RANITIDINE HYDROCHLORIDE

REACTIONS (1)
  - Cerebrovascular accident [Recovered/Resolved]

NARRATIVE: CASE EVENT DATE: 20080422
